FAERS Safety Report 15376189 (Version 1)
Quarter: 2018Q3

REPORT INFORMATION
  Report Type: Spontaneous
  Country: JP (occurrence: JP)
  Receive Date: 20180912
  Receipt Date: 20180912
  Transmission Date: 20181010
  Serious: Yes (Death, Other)
  Sender: FDA-Public Use
  Company Number: JP-FRESENIUS KABI-FK201809502

PATIENT
  Age: 6 Decade
  Sex: Female

DRUGS (4)
  1. METHYLPREDNISOLONE (MANUFACTURER UNKNOWN) [Suspect]
     Active Substance: METHYLPREDNISOLONE
     Dosage: 24 MG/DAY REDUCED TO 16 MG/DAY
     Route: 065
  2. METHYLPREDNISOLONE (MANUFACTURER UNKNOWN) [Suspect]
     Active Substance: METHYLPREDNISOLONE
     Indication: PEMPHIGUS
     Dosage: PULSE
     Route: 042
  3. BETAMETHASONE. [Suspect]
     Active Substance: BETAMETHASONE
     Indication: PEMPHIGUS
     Dosage: 5,0 MG/DAY, TO 4,5 MG/DAY TO 1,5 MG/DAY
     Route: 065
  4. PREDNISOLONE. [Suspect]
     Active Substance: PREDNISOLONE
     Indication: PEMPHIGUS
     Dosage: 50 MG/DAY TO 60 MG/DAY
     Route: 048

REACTIONS (5)
  - Myopathy [Unknown]
  - Diabetes mellitus [Unknown]
  - Pancreatic neuroendocrine tumour [Unknown]
  - Multiple organ dysfunction syndrome [Fatal]
  - Cataract [Unknown]
